FAERS Safety Report 8304040-1 (Version None)
Quarter: 2012Q2

REPORT INFORMATION
  Report Type: 
  Country: None (occurrence: None)
  Receive Date: 20120418
  Receipt Date: 20110921
  Transmission Date: 20120825
  Serious: No
  Sender: FDA-Public Use
  Company Number: AEUSA201100248

PATIENT
  Age: 60 Year
  Sex: Male

DRUGS (1)
  1. PROLASTIN-C [Suspect]
     Indication: ALPHA-1 ANTI-TRYPSIN DEFICIENCY
     Dosage: IV
     Route: 042

REACTIONS (4)
  - HEADACHE [None]
  - FLUSHING [None]
  - FEELING ABNORMAL [None]
  - BRONCHITIS [None]
